FAERS Safety Report 9899489 (Version 1)
Quarter: 2014Q1

REPORT INFORMATION
  Report Type: Spontaneous
  Country: US (occurrence: US)
  Receive Date: 20140214
  Receipt Date: 20140214
  Transmission Date: 20141002
  Serious: Yes (Other)
  Sender: FDA-Public Use
  Company Number: US-PFIZER INC-2014040068

PATIENT
  Age: 76 Year
  Sex: Male
  Weight: 95.24 kg

DRUGS (5)
  1. LIPITOR [Suspect]
     Indication: BLOOD CHOLESTEROL ABNORMAL
     Dosage: 20 MG (10MG X 2), DAILY
  2. CELEBREX [Suspect]
     Indication: ARTHRALGIA
     Dosage: 200 MG, 1X/DAY
  3. CARDURA [Suspect]
     Indication: PROSTATIC DISORDER
     Dosage: 4 MG, 1X/DAY
  4. LYRICA [Suspect]
     Indication: NEUROPATHY PERIPHERAL
     Dosage: 150 MG, 3X/DAY
  5. LYRICA [Suspect]
     Dosage: 150 MG, 4X/DAY

REACTIONS (2)
  - Fall [Unknown]
  - Pain [Unknown]
